FAERS Safety Report 22750777 (Version 3)
Quarter: 2023Q4

REPORT INFORMATION
  Report Type: Report from Study
  Country: US (occurrence: US)
  Receive Date: 20230726
  Receipt Date: 20231121
  Transmission Date: 20240110
  Serious: Yes (Hospitalization, Other)
  Sender: FDA-Public Use
  Company Number: US-UCBSA-2023037151

PATIENT
  Age: 20 Year
  Sex: Male
  Weight: 112.02 kg

DRUGS (4)
  1. FINTEPLA [Suspect]
     Active Substance: FENFLURAMINE
     Indication: Lennox-Gastaut syndrome
     Dosage: 5.1 MILLILITER, 2X/DAY (BID)
     Route: 048
  2. FINTEPLA [Suspect]
     Active Substance: FENFLURAMINE
     Dosage: 11.2 MILLIGRAM DAILY
     Dates: start: 20030504
  3. FINTEPLA [Suspect]
     Active Substance: FENFLURAMINE
     Dosage: 0.2 MG/KG/DAY 22.4 MILLIGRAM/DAY
     Dates: start: 20230504
  4. FINTEPLA [Suspect]
     Active Substance: FENFLURAMINE
     Dosage: 5.1 MILLILITER, 2X/DAY (BID)
     Dates: start: 2023

REACTIONS (3)
  - Rhinovirus infection [Recovered/Resolved]
  - Asthma [Recovered/Resolved]
  - Tricuspid valve incompetence [Not Recovered/Not Resolved]

NARRATIVE: CASE EVENT DATE: 20231109
